FAERS Safety Report 7042991-9 (Version None)
Quarter: 2010Q4

REPORT INFORMATION
  Report Type: 
  Country: None (occurrence: None)
  Receive Date: 20101013
  Receipt Date: 20101004
  Transmission Date: 20110411
  Serious: Yes (Other)
  Sender: FDA-Public Use
  Company Number: US-JNJFOC-20100106479

PATIENT
  Sex: Male
  Weight: 85.73 kg

DRUGS (3)
  1. REMICADE [Suspect]
     Indication: CROHN'S DISEASE
     Dosage: 40 INFUSIONS TOTAL
     Route: 042
  2. ANTIHISTAMINES [Concomitant]
     Indication: PREMEDICATION
  3. ACETAMINOPHEN [Concomitant]
     Indication: PREMEDICATION

REACTIONS (3)
  - HISTOPLASMOSIS DISSEMINATED [None]
  - LYMPHADENOPATHY [None]
  - TRANSAMINASES INCREASED [None]
